FAERS Safety Report 24018714 (Version 1)
Quarter: 2024Q2

REPORT INFORMATION
  Report Type: Spontaneous
  Country: CA (occurrence: CA)
  Receive Date: 20240627
  Receipt Date: 20240627
  Transmission Date: 20240716
  Serious: Yes (Other)
  Sender: FDA-Public Use
  Company Number: None

PATIENT
  Age: 77 Year
  Sex: Female

DRUGS (2)
  1. METHOTREXATE SODIUM [Suspect]
     Active Substance: METHOTREXATE SODIUM
     Indication: Rheumatoid arthritis
     Route: 065
  2. CELEBREX [Concomitant]
     Active Substance: CELECOXIB

REACTIONS (5)
  - Blood creatinine increased [Unknown]
  - Bradycardia [Unknown]
  - Vitamin B12 increased [Unknown]
  - Blood pressure systolic increased [Unknown]
  - Heart rate irregular [Unknown]
